FAERS Safety Report 8925549 (Version 1)
Quarter: 2012Q4

REPORT INFORMATION
  Report Type: 
  Country: US (occurrence: US)
  Receive Date: 20121126
  Receipt Date: 20121126
  Transmission Date: 20130627
  Serious: Yes (Other)
  Sender: FDA-Public Use
  Company Number: CHPA2012US023812

PATIENT
  Age: 50 Year
  Sex: Female

DRUGS (4)
  1. CONTROL PLP [Suspect]
     Indication: SMOKING CESSATION THERAPY
     Dosage: 21 mg, daily
     Route: 062
     Dates: start: 20120920
  2. PREDNISONE [Concomitant]
  3. ADVAIR [Concomitant]
  4. SPIRIVA [Concomitant]

REACTIONS (4)
  - Oral candidiasis [Not Recovered/Not Resolved]
  - Application site erythema [Not Recovered/Not Resolved]
  - Application site rash [Not Recovered/Not Resolved]
  - Wrong technique in drug usage process [Unknown]
